FAERS Safety Report 7002251-9 (Version None)
Quarter: 2010Q3

REPORT INFORMATION
  Report Type: 
  Country: None (occurrence: None)
  Receive Date: 20100920
  Receipt Date: 20100618
  Transmission Date: 20110219
  Serious: Yes (Other)
  Sender: FDA-Public Use
  Company Number: US-ASTRAZENECA-2010SE21995

PATIENT
  Age: 55 Year
  Sex: Male
  Weight: 77.1 kg

DRUGS (11)
  1. SEROQUEL [Suspect]
     Indication: BIPOLAR DISORDER
     Route: 048
     Dates: start: 20030101
  2. SEROQUEL [Suspect]
     Route: 048
  3. SEROQUEL [Suspect]
     Route: 048
     Dates: start: 20050101, end: 20100101
  4. SEROQUEL [Suspect]
     Route: 048
     Dates: start: 20100101, end: 20100201
  5. SEROQUEL [Suspect]
     Route: 048
     Dates: start: 20100201, end: 20100101
  6. SEROQUEL [Suspect]
     Route: 048
     Dates: start: 20100501
  7. CLONIDINE [Concomitant]
     Indication: BLOOD PRESSURE
  8. METHADONE HCL [Concomitant]
     Indication: PAIN
     Route: 048
  9. ROXICODONE [Concomitant]
     Indication: PAIN
     Route: 048
  10. CLONAZEPAM [Concomitant]
     Route: 048
  11. DRAMAMINE [Concomitant]
     Indication: SUPPLEMENTATION THERAPY
     Route: 048

REACTIONS (21)
  - ASTHENIA [None]
  - BLINDNESS TRANSIENT [None]
  - BLOOD PRESSURE DECREASED [None]
  - DECREASED APPETITE [None]
  - DEPRESSION [None]
  - DRUG INTOLERANCE [None]
  - DYSSTASIA [None]
  - EUPHORIC MOOD [None]
  - FEELING JITTERY [None]
  - HANGOVER [None]
  - INCORRECT DOSE ADMINISTERED [None]
  - INSOMNIA [None]
  - LOSS OF CONSCIOUSNESS [None]
  - MEDICATION ERROR [None]
  - MENTAL DISORDER [None]
  - MUSCLE SPASMS [None]
  - MYALGIA [None]
  - SENSORY DISTURBANCE [None]
  - SOMNOLENCE [None]
  - SYNCOPE [None]
  - WRONG DRUG ADMINISTERED [None]
